FAERS Safety Report 7365619-7 (Version None)
Quarter: 2011Q1

REPORT INFORMATION
  Report Type: 
  Country: None (occurrence: None)
  Receive Date: 20110316
  Receipt Date: 20110316
  Transmission Date: 20110831
  Serious: Yes (Other)
  Sender: FDA-Public Use
  Company Number: None

PATIENT
  Sex: Female
  Weight: 89.8122 kg

DRUGS (1)
  1. FENTANYL TRANSDERMAL SYSTEM MYLAN [Suspect]
     Indication: PAIN
     Dosage: 100MCG/HR 1 PATCH/3 DAYS
     Route: 062
     Dates: start: 20110104

REACTIONS (6)
  - ASTHENIA [None]
  - DIZZINESS [None]
  - MALAISE [None]
  - DEVICE MALFUNCTION [None]
  - OVERDOSE [None]
  - CONFUSIONAL STATE [None]
